FAERS Safety Report 12544213 (Version 1)
Quarter: 2016Q3

REPORT INFORMATION
  Report Type: Spontaneous
  Country: US (occurrence: US)
  Receive Date: 20160711
  Receipt Date: 20160711
  Transmission Date: 20161109
  Serious: Yes (Hospitalization, Other)
  Sender: FDA-Public Use
  Company Number: US-ZYDUS-011547

PATIENT
  Age: 79 Year
  Sex: Female

DRUGS (1)
  1. AMIODARONE [Suspect]
     Active Substance: AMIODARONE
     Indication: CARDIOVERSION
     Route: 042

REACTIONS (6)
  - Hypotension [Recovering/Resolving]
  - Arteriospasm coronary [Unknown]
  - Vasodilatation [Unknown]
  - Ventricular hypokinesia [Unknown]
  - Kounis syndrome [Unknown]
  - Left ventricular dysfunction [Unknown]
